FAERS Safety Report 14261669 (Version 1)
Quarter: 2017Q4

REPORT INFORMATION
  Report Type: Spontaneous
  Country: US (occurrence: None)
  Receive Date: 20171208
  Receipt Date: 20171208
  Transmission Date: 20180321
  Serious: Yes (Other)
  Sender: FDA-Public Use
  Company Number: None

PATIENT
  Age: 78 Year

DRUGS (1)
  1. CAPECITABINE 500MG [Suspect]
     Active Substance: CAPECITABINE
     Dosage: CAPECITABINE 500MG 56 - 2 TABS ORAL BID X 14 DAYS
     Route: 048
     Dates: start: 20171208

REACTIONS (5)
  - Diarrhoea [None]
  - Weight decreased [None]
  - Skin ulcer [None]
  - Flatulence [None]
  - Eating disorder [None]

NARRATIVE: CASE EVENT DATE: 20171205
